FAERS Safety Report 5967978-6 (Version None)
Quarter: 2008Q4

REPORT INFORMATION
  Report Type: 
  Country: None (occurrence: None)
  Receive Date: 20081121
  Receipt Date: 20081111
  Transmission Date: 20090506
  Serious: Yes (Hospitalization)
  Sender: FDA-Public Use
  Company Number: 2008-04130

PATIENT
  Age: 64 Year
  Sex: Male

DRUGS (3)
  1. VELCADE [Suspect]
     Indication: MULTIPLE MYELOMA
     Dosage: 2.7 MG, INTRAVENOUS
     Route: 042
     Dates: start: 20081021, end: 20081031
  2. DEXAMETHASONE TAB [Suspect]
     Indication: MULTIPLE MYELOMA
     Dosage: 40 MG, ORAL
     Route: 048
     Dates: start: 20081021, end: 20081102
  3. DOXORUBICIN HCL [Suspect]
     Indication: MULTIPLE MYELOMA
     Dosage: 74 MG, INTRAVENOUS
     Route: 042
     Dates: start: 20081021, end: 20081024

REACTIONS (6)
  - CIRCULATORY COLLAPSE [None]
  - DEHYDRATION [None]
  - DIZZINESS POSTURAL [None]
  - MALAISE [None]
  - MOTION SICKNESS [None]
  - TUMOUR LYSIS SYNDROME [None]
